FAERS Safety Report 24121576 (Version 1)
Quarter: 2024Q3

REPORT INFORMATION
  Report Type: Spontaneous
  Country: US (occurrence: US)
  Receive Date: 20240722
  Receipt Date: 20240722
  Transmission Date: 20241016
  Serious: Yes (Other)
  Sender: ACIC FINE CHEMICALS
  Company Number: US-ACIC Fine Chemicals Inc-2159447

PATIENT
  Age: 53 Year
  Sex: Female

DRUGS (1)
  1. TRANEXAMIC ACID [Suspect]
     Active Substance: TRANEXAMIC ACID
     Indication: Product used for unknown indication

REACTIONS (2)
  - Post procedural pulmonary embolism [Recovered/Resolved]
  - Necrotising soft tissue infection [Recovered/Resolved]
